FAERS Safety Report 23673681 (Version 1)
Quarter: 2024Q1

REPORT INFORMATION
  Report Type: Spontaneous
  Country: US (occurrence: US)
  Receive Date: 20240326
  Receipt Date: 20240326
  Transmission Date: 20240409
  Serious: No
  Sender: FDA-Public Use
  Company Number: US-Accord-300449

PATIENT
  Sex: Female
  Weight: 41.73 kg

DRUGS (2)
  1. TACROLIMUS [Suspect]
     Active Substance: TACROLIMUS
     Indication: Dermatitis atopic
     Dosage: 03%, APPLIED TOPICALLY TO EYELIDS,?ONCE DAILY FOR 1 WEEK
     Route: 061
     Dates: start: 20221229, end: 20230105
  2. VITAMINS [Concomitant]
     Active Substance: VITAMINS

REACTIONS (4)
  - Eyelid irritation [Unknown]
  - Product odour abnormal [Unknown]
  - Incorrect dose administered [Unknown]
  - Rash pruritic [Unknown]
